FAERS Safety Report 5196707-1 (Version None)
Quarter: 2007Q1

REPORT INFORMATION
  Report Type: 
  Country: None (occurrence: None)
  Receive Date: 20070103
  Receipt Date: 20061228
  Transmission Date: 20070707
  Serious: Yes (Other)
  Sender: FDA-Public Use
  Company Number: PHRM2006FR03419

PATIENT
  Age: 40 Year
  Sex: Female

DRUGS (2)
  1. RITALIN [Suspect]
     Indication: SOMNOLENCE
     Dosage: 40 MG DAILY
     Route: 048
     Dates: start: 20060101
  2. RITALIN [Suspect]
     Dosage: 30 MG DAILY
     Route: 048
     Dates: end: 20061201

REACTIONS (2)
  - INTENTIONAL DRUG MISUSE [None]
  - PHOBIA [None]
